FAERS Safety Report 8278088-X (Version None)
Quarter: 2012Q2

REPORT INFORMATION
  Report Type: 
  Country: None (occurrence: None)
  Receive Date: 20120412
  Receipt Date: 20110923
  Transmission Date: 20120825
  Serious: No
  Sender: FDA-Public Use
  Company Number: US-ASTRAZENECA-2011SE32495

PATIENT
  Age: 45 Year
  Sex: Female

DRUGS (2)
  1. NEXIUM [Suspect]
     Dosage: DAILY
     Route: 048
     Dates: end: 20110525
  2. NEXIUM [Suspect]
     Route: 048

REACTIONS (7)
  - GASTROOESOPHAGEAL REFLUX DISEASE [None]
  - DECREASED APPETITE [None]
  - DYSPEPSIA [None]
  - ABDOMINAL DISCOMFORT [None]
  - MALAISE [None]
  - APHAGIA [None]
  - DRUG DOSE OMISSION [None]
